FAERS Safety Report 24055711 (Version 1)
Quarter: 2024Q3

REPORT INFORMATION
  Report Type: Spontaneous
  Country: US (occurrence: US)
  Receive Date: 20240705
  Receipt Date: 20240705
  Transmission Date: 20241016
  Serious: Yes (Death, Hospitalization, Other)
  Sender: AMGEN
  Company Number: US-AMGEN-USASP2024129661

PATIENT
  Age: 45 Year
  Sex: Male

DRUGS (4)
  1. PREDNISONE [Suspect]
     Active Substance: PREDNISONE
     Indication: COVID-19
     Dosage: 5 MILLIGRAM, QD
     Route: 065
  2. MYCOPHENOLIC ACID [Concomitant]
     Active Substance: MYCOPHENOLIC ACID
     Indication: COVID-19
     Dosage: 1500 MILLIGRAM, BID
  3. TACROLIMUS [Concomitant]
     Active Substance: TACROLIMUS
     Indication: COVID-19
     Dosage: 12 MILLIGRAM, BID, FOR THREE DAYS
  4. REMDESIVIR [Concomitant]
     Active Substance: REMDESIVIR
     Indication: COVID-19

REACTIONS (8)
  - Complications of transplanted heart [Fatal]
  - Abdominal distension [Unknown]
  - Ejection fraction decreased [Unknown]
  - Acute kidney injury [Unknown]
  - Cardiac failure [Unknown]
  - Heart transplant rejection [Unknown]
  - Dyspnoea [Unknown]
  - Early satiety [Unknown]
